FAERS Safety Report 5255698-5 (Version None)
Quarter: 2007Q1

REPORT INFORMATION
  Report Type: 
  Country: None (occurrence: None)
  Receive Date: 20070305
  Receipt Date: 20070221
  Transmission Date: 20070707
  Serious: Yes (Death, Hospitalization)
  Sender: FDA-Public Use
  Company Number: JP-PFIZER INC-2007014408

PATIENT
  Sex: Male
  Weight: 48 kg

DRUGS (7)
  1. ZYVOX [Suspect]
     Indication: PNEUMONIA STAPHYLOCOCCAL
     Route: 042
     Dates: start: 20050505, end: 20050509
  2. VANCOMYCIN HYDROCHLORIDE [Concomitant]
     Route: 042
  3. ROCEPHIN [Concomitant]
     Indication: PNEUMONIA
     Route: 042
  4. MEROPEN [Concomitant]
     Indication: PNEUMONIA
     Route: 042
     Dates: start: 20050424, end: 20050427
  5. SOLU-MEDROL [Concomitant]
     Indication: INTERSTITIAL LUNG DISEASE
     Route: 042
  6. ELASPOL [Concomitant]
     Indication: ACUTE RESPIRATORY DISTRESS SYNDROME
     Route: 042
  7. PROPOFOL [Concomitant]
     Route: 042

REACTIONS (2)
  - RESPIRATORY FAILURE [None]
  - RHABDOMYOLYSIS [None]
